FAERS Safety Report 9607803 (Version 2)
Quarter: 2013Q4

REPORT INFORMATION
  Report Type: Spontaneous
  Country: CN (occurrence: None)
  Receive Date: 20131004
  Receipt Date: 20131028
  Transmission Date: 20140711
  Serious: Yes (Hospitalization)
  Sender: FDA-Public Use
  Company Number: SYM-2013-11190

PATIENT
  Age: 56 Year
  Sex: Female

DRUGS (4)
  1. 5-FU [Suspect]
     Indication: COLORECTAL CANCER METASTATIC
     Route: 040
     Dates: start: 20130717, end: 20130717
  2. LEUCOVORIN (FOLINIC ACID) (SOLUTION FOR INFUSION) (FOLINIC ACID) [Suspect]
     Indication: COLORECTAL CANCER METASTATIC
     Route: 041
     Dates: start: 20130717, end: 20130717
  3. BLINDED THERAPY (OTHER THERAPEUTIC PRODUCTS) (SOLUTION FOR INFUSION) (NULL) [Suspect]
     Indication: COLORECTAL CANCER METASTATIC
     Route: 041
     Dates: start: 20130717, end: 20130717
  4. IRINOTECAN [Suspect]
     Indication: COLORECTAL CANCER METASTATIC
     Route: 041
     Dates: start: 20130717, end: 20130717

REACTIONS (3)
  - Metastases to meninges [None]
  - Malignant neoplasm progression [None]
  - Cerebral ischaemia [None]
